FAERS Safety Report 8974728 (Version 1)
Quarter: 2012Q4

REPORT INFORMATION
  Report Type: Spontaneous
  Country: US (occurrence: None)
  Receive Date: 20121212
  Receipt Date: 20121212
  Transmission Date: 20130627
  Serious: Yes (Other)
  Sender: FDA-Public Use
  Company Number: 2012AP004186

PATIENT
  Age: 68 Year
  Sex: Female

DRUGS (6)
  1. LEVOFLOXACIN [Suspect]
     Indication: PROPHYLAXIS
  2. ATENOLOL [Concomitant]
  3. AMLODIPINE [Concomitant]
  4. RABEPRAZOLE [Concomitant]
  5. DIPHENHYDRAMINE [Concomitant]
  6. ASPIRIN [Concomitant]

REACTIONS (6)
  - Uveitis [None]
  - Chorioretinal scar [None]
  - Macule [None]
  - Rash pustular [None]
  - Vitreous floaters [None]
  - Intraocular pressure decreased [None]
